FAERS Safety Report 26139638 (Version 1)
Quarter: 2025Q4

REPORT INFORMATION
  Report Type: Spontaneous
  Country: EU (occurrence: EU)
  Receive Date: 20251210
  Receipt Date: 20251210
  Transmission Date: 20260117
  Serious: Yes (Disabling)
  Sender: CHEPLAPHARM
  Company Number: None

PATIENT
  Age: 62 Year
  Sex: Female

DRUGS (3)
  1. OLANZAPINE [Suspect]
     Active Substance: OLANZAPINE
     Indication: Schizophrenia
     Dosage: 5MG ONCE A DAY?DAILY DOSE: 5 MILLIGRAM
     Route: 048
     Dates: start: 20201001
  2. OLANZAPINE [Suspect]
     Active Substance: OLANZAPINE
     Indication: Schizophrenia
     Dosage: THEN RECEIVED ZYPREXA DEPOT FOR A PERIOD UNTIL 2023
     Dates: end: 2023
  3. OLANZAPINE [Suspect]
     Active Substance: OLANZAPINE
     Indication: Schizophrenia
     Dosage: SWITCHED BACK TO ORAL MEDICATION
     Route: 048

REACTIONS (2)
  - Tardive dyskinesia [Unknown]
  - Parkinsonism [Unknown]
